FAERS Safety Report 18638892 (Version 1)
Quarter: 2020Q4

REPORT INFORMATION
  Report Type: Spontaneous
  Country: US (occurrence: US)
  Receive Date: 20201218
  Receipt Date: 20201218
  Transmission Date: 20210114
  Serious: No
  Sender: FDA-Public Use
  Company Number: US-PFIZER INC-2020499071

PATIENT
  Age: 79 Year
  Sex: Female

DRUGS (2)
  1. ADVIL [Suspect]
     Active Substance: IBUPROFEN
     Indication: INFLAMMATION
     Dosage: UNK
  2. ADVIL [Suspect]
     Active Substance: IBUPROFEN
     Indication: ARTHRITIS

REACTIONS (7)
  - Product packaging difficult to open [Unknown]
  - Abdominal pain upper [Unknown]
  - Packaging design issue [Unknown]
  - Limb injury [Unknown]
  - Gastritis [Unknown]
  - Depressed mood [Unknown]
  - Epigastric discomfort [Unknown]
